FAERS Safety Report 22290034 (Version 2)
Quarter: 2024Q2

REPORT INFORMATION
  Report Type: Report from Study
  Country: BR (occurrence: BR)
  Receive Date: 20230505
  Receipt Date: 20240502
  Transmission Date: 20240716
  Serious: Yes (Hospitalization, Other)
  Sender: FDA-Public Use
  Company Number: BR-JNJFOC-20230412798

PATIENT
  Age: 48 Year
  Sex: Female
  Weight: 44 kg

DRUGS (4)
  1. INFLIXIMAB [Suspect]
     Active Substance: INFLIXIMAB
     Indication: Crohn^s disease
     Route: 041
     Dates: start: 20220603, end: 20221110
  2. INFLIXIMAB [Suspect]
     Active Substance: INFLIXIMAB
     Route: 041
     Dates: start: 20230315
  3. REMICADE [Suspect]
     Active Substance: INFLIXIMAB
     Indication: Crohn^s disease
     Route: 041
  4. HYDROCORTISONE [Concomitant]
     Active Substance: HYDROCORTISONE

REACTIONS (8)
  - Drug-induced liver injury [Unknown]
  - Autoimmune hepatitis [Unknown]
  - Gastric ulcer [Unknown]
  - Crohn^s disease [Unknown]
  - Intellectual disability [Unknown]
  - Drug ineffective [Unknown]
  - Weight fluctuation [Recovered/Resolved]
  - Malaise [Unknown]
